FAERS Safety Report 24139540 (Version 3)
Quarter: 2024Q4

REPORT INFORMATION
  Report Type: Spontaneous
  Country: US (occurrence: US)
  Receive Date: 20240726
  Receipt Date: 20241007
  Transmission Date: 20250114
  Serious: No
  Sender: SAGE
  Company Number: US-SAGE-2024SAGE000083

PATIENT
  Age: 39 Year
  Sex: Female
  Weight: 126.53 kg

DRUGS (8)
  1. ZULRESSO [Suspect]
     Active Substance: BREXANOLONE
     Indication: Perinatal depression
     Dosage: UNK
     Route: 042
     Dates: start: 20240708
  2. ZULRESSO [Suspect]
     Active Substance: BREXANOLONE
     Dosage: 90 MCG/KG/H
     Route: 042
     Dates: end: 20240709
  3. ZULRESSO [Suspect]
     Active Substance: BREXANOLONE
     Dosage: 30 MCG/KG/H FOR 15 MIN
     Route: 042
     Dates: start: 20240710, end: 20240710
  4. ZULRESSO [Suspect]
     Active Substance: BREXANOLONE
     Dosage: 60 MCG/KG/H FOR 15 MIN
     Route: 042
     Dates: start: 20240710, end: 20240710
  5. ZULRESSO [Suspect]
     Active Substance: BREXANOLONE
     Dosage: 90 MCG/KG/H
     Route: 042
     Dates: start: 20240710, end: 20240710
  6. ZULRESSO [Suspect]
     Active Substance: BREXANOLONE
     Dosage: UNK
     Route: 042
     Dates: end: 20240710
  7. ESCITALOPRAM [Concomitant]
     Active Substance: ESCITALOPRAM OXALATE
     Indication: Perinatal depression
     Dosage: 20 MG, QD
     Route: 048
     Dates: start: 20240103
  8. BUPROPION HYDROCHLORIDE XL [Concomitant]
     Active Substance: BUPROPION HYDROCHLORIDE
     Indication: Depression
     Dosage: 150 MG, QD
     Route: 048
     Dates: start: 20240605

REACTIONS (2)
  - Sinus bradycardia [Recovered/Resolved]
  - Sedation [Recovered/Resolved]

NARRATIVE: CASE EVENT DATE: 20240709
